FAERS Safety Report 4864027-8 (Version None)
Quarter: 2005Q4

REPORT INFORMATION
  Report Type: 
  Country: None (occurrence: None)
  Receive Date: 20051219
  Receipt Date: 20051206
  Transmission Date: 20060501
  Serious: Yes (Other)
  Sender: FDA-Public Use
  Company Number: 2005164261

PATIENT
  Age: 67 Year
  Sex: Female

DRUGS (3)
  1. METHYLPREDNISOLONE [Suspect]
     Indication: RASH
     Dates: start: 20040123
  2. PREDNISONE [Suspect]
     Indication: ILL-DEFINED DISORDER
  3. RITUXIMAB [Concomitant]

REACTIONS (11)
  - BLOOD PRESSURE DECREASED [None]
  - DEHYDRATION [None]
  - DILATATION VENTRICULAR [None]
  - HYPOKINESIA [None]
  - MUSCULAR WEAKNESS [None]
  - OXYGEN SATURATION DECREASED [None]
  - PULMONARY ARTERY THROMBOSIS [None]
  - PULMONARY EMBOLISM [None]
  - TACHYCARDIA [None]
  - URINE OUTPUT DECREASED [None]
  - VENOUS THROMBOSIS [None]
